FAERS Safety Report 9007445 (Version 1)
Quarter: 2013Q1

REPORT INFORMATION
  Report Type: Spontaneous
  Country: US (occurrence: US)
  Receive Date: 20130110
  Receipt Date: 20130110
  Transmission Date: 20140127
  Serious: Yes (Hospitalization, Disabling)
  Sender: FDA-Public Use
  Company Number: US-009507513-1301USA003015

PATIENT
  Age: 29 Year
  Sex: Female

DRUGS (2)
  1. SINGULAIR [Suspect]
     Indication: ASTHMA
     Route: 048
  2. MODAFINIL [Suspect]
     Indication: HYPERSOMNIA
     Dosage: 100 MG, BID
     Route: 048

REACTIONS (6)
  - Oedema [Unknown]
  - Tension [Unknown]
  - Rhinitis [Unknown]
  - Respiratory tract infection [Unknown]
  - Pain in extremity [Unknown]
  - Oropharyngeal pain [Unknown]
